FAERS Safety Report 11276478 (Version 1)
Quarter: 2015Q3

REPORT INFORMATION
  Report Type: Spontaneous
  Country: IT (occurrence: IT)
  Receive Date: 20150716
  Receipt Date: 20150716
  Transmission Date: 20151125
  Serious: Yes (Disabling, Other)
  Sender: FDA-Public Use
  Company Number: IT-TEVA-545551ISR

PATIENT
  Age: 73 Year
  Sex: Female
  Weight: 68 kg

DRUGS (3)
  1. ALENDRONATE SODIUM. [Suspect]
     Active Substance: ALENDRONATE SODIUM
     Indication: OSTEOPOROSIS PROPHYLAXIS
     Dosage: 70 MG WEEKLY
     Route: 065
     Dates: start: 20130801, end: 20150120
  2. SIMVASTATIN. [Concomitant]
     Active Substance: SIMVASTATIN
     Indication: HYPERCHOLESTEROLAEMIA
     Dosage: 10 MG MILLIGRAM(S)
     Route: 048
  3. DIBASE 10.000 UI/ML [Concomitant]
     Indication: VITAMIN D DEFICIENCY
     Dosage: 30 DROP(S)
     Route: 048

REACTIONS (2)
  - Osteonecrosis of jaw [Recovered/Resolved with Sequelae]
  - Osteomyelitis acute [Unknown]

NARRATIVE: CASE EVENT DATE: 20150120
